FAERS Safety Report 25214983 (Version 1)
Quarter: 2025Q2

REPORT INFORMATION
  Report Type: Spontaneous
  Country: CA (occurrence: CA)
  Receive Date: 20250418
  Receipt Date: 20250418
  Transmission Date: 20250716
  Serious: Yes (Other)
  Sender: TAKEDA
  Company Number: CA-TAKEDA-2025TUS036759

PATIENT
  Age: 30 Year
  Sex: Male
  Weight: 100 kg

DRUGS (10)
  1. ENTYVIO [Suspect]
     Active Substance: VEDOLIZUMAB
     Indication: Colitis ulcerative
  2. LEVOTHYROXINE [Concomitant]
     Active Substance: LEVOTHYROXINE
     Indication: Hypothyroidism
  3. FINASTERIDE [Concomitant]
     Active Substance: FINASTERIDE
  4. TERAZOSIN [Concomitant]
     Active Substance: TERAZOSIN HYDROCHLORIDE
  5. METOPROLOL [Concomitant]
     Active Substance: METOPROLOL
  6. ALDACTONE [Concomitant]
     Active Substance: SPIRONOLACTONE
  7. ATACAND [Concomitant]
     Active Substance: CANDESARTAN CILEXETIL
  8. DAPAGLIFLOZIN [Concomitant]
     Active Substance: DAPAGLIFLOZIN
  9. FUROSEMIDE [Concomitant]
     Active Substance: FUROSEMIDE
  10. APIXABAN [Concomitant]
     Active Substance: APIXABAN
     Indication: Atrial fibrillation

REACTIONS (1)
  - Dental restoration failure [Recovering/Resolving]

NARRATIVE: CASE EVENT DATE: 20250310
